FAERS Safety Report 22925635 (Version 4)
Quarter: 2024Q1

REPORT INFORMATION
  Report Type: Spontaneous
  Country: JP (occurrence: JP)
  Receive Date: 20230908
  Receipt Date: 20240318
  Transmission Date: 20240410
  Serious: Yes (Hospitalization, Other)
  Sender: FDA-Public Use
  Company Number: JP-MSD-2309JPN000065J

PATIENT
  Age: 67 Year
  Sex: Female

DRUGS (2)
  1. KEYTRUDA [Suspect]
     Active Substance: PEMBROLIZUMAB
     Indication: Uterine cancer
     Dosage: 200 MILLIGRAM, Q3W
     Route: 065
     Dates: start: 20230804, end: 202308
  2. LENVATINIB MESYLATE [Suspect]
     Active Substance: LENVATINIB MESYLATE
     Indication: Uterine cancer
     Dosage: 20 MILLIGRAM
     Route: 048
     Dates: start: 20230804, end: 202308

REACTIONS (11)
  - Malignant neoplasm progression [Recovering/Resolving]
  - Aspartate aminotransferase increased [Recovering/Resolving]
  - Skin disorder [Unknown]
  - Rhabdomyolysis [Recovered/Resolved]
  - Blood creatine phosphokinase increased [Recovering/Resolving]
  - Myasthenia gravis [Unknown]
  - Coronavirus infection [Unknown]
  - Hypersensitivity [Unknown]
  - Myositis [Recovered/Resolved]
  - Malaise [Recovered/Resolved]
  - Hypertension [Unknown]

NARRATIVE: CASE EVENT DATE: 20230801
